FAERS Safety Report 16894516 (Version 2)
Quarter: 2019Q4

REPORT INFORMATION
  Report Type: Spontaneous
  Country: TW (occurrence: TW)
  Receive Date: 20191008
  Receipt Date: 20191017
  Transmission Date: 20200122
  Serious: Yes (Hospitalization)
  Sender: FDA-Public Use
  Company Number: TW-PFIZER INC-2019433424

PATIENT
  Age: 35 Year
  Sex: Male

DRUGS (6)
  1. BENEFIX [Suspect]
     Active Substance: COAGULATION FACTOR IX RECOMBINANT HUMAN\ISOPROPYL ALCOHOL
     Dosage: 6500 IU, 1X/DAY (5000 IU IN THE MORNING, 1500 IU IN THE EVENING)
     Route: 042
     Dates: start: 20191001, end: 20191001
  2. BENEFIX [Suspect]
     Active Substance: COAGULATION FACTOR IX RECOMBINANT HUMAN\ISOPROPYL ALCOHOL
     Indication: FACTOR IX DEFICIENCY
     Dosage: 4000 IU, 2X/WEEK
     Route: 042
  3. BENEFIX [Suspect]
     Active Substance: COAGULATION FACTOR IX RECOMBINANT HUMAN\ISOPROPYL ALCOHOL
     Dosage: 4000 IU, 1X/DAY
     Route: 042
     Dates: start: 20190928, end: 20190930
  4. BENEFIX [Suspect]
     Active Substance: COAGULATION FACTOR IX RECOMBINANT HUMAN\ISOPROPYL ALCOHOL
     Dosage: 7500 IU, 1X/DAY (6000 IU IN THE MORNING, 1500 IU IN THE AFTERNOON)
     Route: 042
     Dates: start: 20191003, end: 20191004
  5. BENEFIX [Suspect]
     Active Substance: COAGULATION FACTOR IX RECOMBINANT HUMAN\ISOPROPYL ALCOHOL
     Dosage: 8000 IU, 1X/DAY (6000 IU BEFORE SURGRY, 2000 IU POST SURGERY)
     Route: 042
     Dates: start: 20191002, end: 20191002
  6. BENEFIX [Suspect]
     Active Substance: COAGULATION FACTOR IX RECOMBINANT HUMAN\ISOPROPYL ALCOHOL
     Dosage: 6000 IU, 1X/DAY
     Route: 042
     Dates: start: 20191005

REACTIONS (4)
  - Lower limb fracture [Recovering/Resolving]
  - Facial bones fracture [Recovering/Resolving]
  - Road traffic accident [Recovering/Resolving]
  - Multiple injuries [Recovering/Resolving]

NARRATIVE: CASE EVENT DATE: 20190928
